FAERS Safety Report 9775846 (Version 3)
Quarter: 2013Q4

REPORT INFORMATION
  Report Type: Not Available
  Country: US (occurrence: US)
  Receive Date: 20131220
  Receipt Date: 20131227
  Transmission Date: 20140711
  Serious: Yes (Hospitalization)
  Sender: FDA-Public Use
  Company Number: US-ONYX-2013-1554

PATIENT
  Age: 69 Year
  Sex: Male

DRUGS (12)
  1. KYPROLIS [Suspect]
     Indication: PARAPROTEINAEMIA
     Dates: start: 20130807, end: 20131017
  2. ALLOPURINOL [Concomitant]
     Indication: PRODUCT USED FOR UNKNOWN INDICATION
  3. ALPRAZOLAM [Concomitant]
     Indication: PRODUCT USED FOR UNKNOWN INDICATION
  4. SURTUSSIN [Concomitant]
     Indication: PRODUCT USED FOR UNKNOWN INDICATION
  5. DEXAMETHASONE [Concomitant]
     Indication: PRODUCT USED FOR UNKNOWN INDICATION
  6. DIFLUCAN [Concomitant]
     Indication: PRODUCT USED FOR UNKNOWN INDICATION
  7. ONDANSETRON [Concomitant]
     Indication: PRODUCT USED FOR UNKNOWN INDICATION
  8. PRILOSEC [Concomitant]
     Indication: PRODUCT USED FOR UNKNOWN INDICATION
  9. REVLIMID [Concomitant]
     Indication: PARAPROTEINAEMIA
  10. TRAMADOL [Concomitant]
     Indication: PRODUCT USED FOR UNKNOWN INDICATION
  11. TYLENOL [Concomitant]
     Indication: PRODUCT USED FOR UNKNOWN INDICATION
  12. XARELTO [Concomitant]
     Indication: PRODUCT USED FOR UNKNOWN INDICATION

REACTIONS (17)
  - Dehydration [Unknown]
  - Blood glucose increased [Unknown]
  - Atrial fibrillation [Not Recovered/Not Resolved]
  - Cardiac failure congestive [Unknown]
  - Squamous cell carcinoma [Recovered/Resolved]
  - Abasia [Not Recovered/Not Resolved]
  - Muscular weakness [Not Recovered/Not Resolved]
  - Asthenia [Recovering/Resolving]
  - Dyspnoea [Recovering/Resolving]
  - Gait disturbance [Recovering/Resolving]
  - Hypophagia [Recovering/Resolving]
  - Oedema peripheral [Recovered/Resolved]
  - Loss of consciousness [Recovered/Resolved]
  - Excoriation [Unknown]
  - Confusional state [Not Recovered/Not Resolved]
  - Depression [Not Recovered/Not Resolved]
  - Skin lesion [Not Recovered/Not Resolved]
